FAERS Safety Report 20703979 (Version 1)
Quarter: 2022Q2

REPORT INFORMATION
  Report Type: Spontaneous
  Country: CA (occurrence: CA)
  Receive Date: 20220413
  Receipt Date: 20220413
  Transmission Date: 20220720
  Serious: Yes (Other)
  Sender: FDA-Public Use
  Company Number: CA-BAXTER-2022BAX007848

PATIENT
  Age: 51 Year
  Sex: Female

DRUGS (20)
  1. CYCLOPHOSPHAMIDE [Suspect]
     Active Substance: CYCLOPHOSPHAMIDE
     Indication: Progesterone receptor assay negative
     Route: 065
  2. CYCLOPHOSPHAMIDE [Suspect]
     Active Substance: CYCLOPHOSPHAMIDE
     Indication: Oestrogen receptor assay negative
     Route: 065
  3. CYCLOPHOSPHAMIDE [Suspect]
     Active Substance: CYCLOPHOSPHAMIDE
     Indication: HER2 positive breast cancer
     Route: 065
  4. CYCLOPHOSPHAMIDE [Suspect]
     Active Substance: CYCLOPHOSPHAMIDE
     Indication: Breast cancer stage III
     Route: 065
  5. ALTACE [Suspect]
     Active Substance: RAMIPRIL
     Indication: Cardiac failure congestive
     Route: 065
  6. DOCETAXEL [Suspect]
     Active Substance: DOCETAXEL
     Indication: Progesterone receptor assay negative
     Route: 065
  7. DOCETAXEL [Suspect]
     Active Substance: DOCETAXEL
     Indication: Oestrogen receptor assay negative
     Route: 065
  8. DOCETAXEL [Suspect]
     Active Substance: DOCETAXEL
     Indication: HER2 positive breast cancer
     Route: 065
  9. DOCETAXEL [Suspect]
     Active Substance: DOCETAXEL
     Indication: Breast cancer stage III
     Route: 065
  10. EPIRUBICIN HYDROCHLORIDE [Suspect]
     Active Substance: EPIRUBICIN HYDROCHLORIDE
     Indication: Progesterone receptor assay negative
     Route: 065
  11. EPIRUBICIN HYDROCHLORIDE [Suspect]
     Active Substance: EPIRUBICIN HYDROCHLORIDE
     Indication: Oestrogen receptor assay negative
     Route: 065
  12. EPIRUBICIN HYDROCHLORIDE [Suspect]
     Active Substance: EPIRUBICIN HYDROCHLORIDE
     Indication: HER2 positive breast cancer
     Route: 065
  13. EPIRUBICIN HYDROCHLORIDE [Suspect]
     Active Substance: EPIRUBICIN HYDROCHLORIDE
     Indication: Breast cancer stage III
     Route: 065
  14. FLUOROURACIL [Suspect]
     Active Substance: FLUOROURACIL
     Indication: Progesterone receptor assay negative
     Dosage: DOSAGE FORM: NOT SPECIFIED
     Route: 065
  15. FLUOROURACIL [Suspect]
     Active Substance: FLUOROURACIL
     Indication: HER2 positive breast cancer
     Dosage: DOSAGE FORM: NOT SPECIFIED
     Route: 065
  16. FLUOROURACIL [Suspect]
     Active Substance: FLUOROURACIL
     Indication: Breast cancer stage III
     Dosage: DOSAGE FORM: NOT SPECIFIED
     Route: 065
  17. TRASTUZUMAB [Suspect]
     Active Substance: TRASTUZUMAB
     Indication: Progesterone receptor assay negative
     Route: 065
  18. TRASTUZUMAB [Suspect]
     Active Substance: TRASTUZUMAB
     Indication: Oestrogen receptor assay negative
     Route: 065
  19. TRASTUZUMAB [Suspect]
     Active Substance: TRASTUZUMAB
     Indication: HER2 positive breast cancer
     Route: 065
  20. TRASTUZUMAB [Suspect]
     Active Substance: TRASTUZUMAB
     Indication: Breast cancer stage III
     Route: 065

REACTIONS (2)
  - Drug intolerance [Unknown]
  - Cardiac failure congestive [Unknown]
